FAERS Safety Report 9010072 (Version 1)
Quarter: 2013Q1

REPORT INFORMATION
  Report Type: Spontaneous
  Country: FR (occurrence: FR)
  Receive Date: 20130110
  Receipt Date: 20130110
  Transmission Date: 20140127
  Serious: Yes (Hospitalization)
  Sender: FDA-Public Use
  Company Number: FR-MILLENNIUM PHARMACEUTICALS, INC.-2013-00110

PATIENT
  Sex: 0

DRUGS (5)
  1. VELCADE [Suspect]
     Indication: PLASMACYTOMA
     Dosage: 1.3 MG/M2, 1/WEEK
     Route: 065
     Dates: start: 201211
  2. CORTISONE [Suspect]
     Indication: PLASMACYTOMA
     Route: 065
  3. DUROGESIC [Concomitant]
     Indication: PAIN
  4. ACTISKENAN [Concomitant]
     Indication: PAIN
     Dosage: 5 MG, UNK
     Route: 048
  5. DAFALGAN /00020001/ [Concomitant]
     Indication: PAIN
     Route: 048

REACTIONS (7)
  - Lung disorder [Not Recovered/Not Resolved]
  - Herpes zoster [Not Recovered/Not Resolved]
  - Hypoxia [Not Recovered/Not Resolved]
  - Anxiety [Not Recovered/Not Resolved]
  - Confusional state [Not Recovered/Not Resolved]
  - Dyspnoea [Not Recovered/Not Resolved]
  - Off label use [Unknown]
